FAERS Safety Report 6973975-4 (Version None)
Quarter: 2010Q3

REPORT INFORMATION
  Report Type: 
  Country: None (occurrence: None)
  Receive Date: 20100907
  Receipt Date: 20100823
  Transmission Date: 20110219
  Serious: Yes (Hospitalization)
  Sender: FDA-Public Use
  Company Number: 1000015993

PATIENT
  Age: 92 Year
  Sex: Female
  Weight: 32 kg

DRUGS (8)
  1. ESCITALOPRAM [Suspect]
     Indication: DEPRESSION
     Dosage: 10 MG (10 MG, 1 IN 1 D), ORAL
     Route: 048
     Dates: start: 20091005
  2. ARIXTRA [Suspect]
     Dosage: 2.5 MG / 0.5 ML (1 DOSAGE FORMS), SUBCUTANEOUS
     Route: 058
     Dates: start: 20100401, end: 20100601
  3. LASIX [Concomitant]
  4. ALDACTONE [Concomitant]
  5. RIVOTRIL [Concomitant]
  6. BISOPROLOL FUMARATE [Concomitant]
  7. FOSAVANCE [Concomitant]
  8. PERINDOPRIL ERBUMINE [Concomitant]

REACTIONS (2)
  - ANAEMIA [None]
  - HAEMORRHAGIC DISORDER [None]
